FAERS Safety Report 7599748-X (Version None)
Quarter: 2011Q2

REPORT INFORMATION
  Report Type: 
  Country: None (occurrence: None)
  Receive Date: 20110629
  Receipt Date: 20110621
  Transmission Date: 20111010
  Serious: Yes (Life-Threatening)
  Sender: FDA-Public Use
  Company Number: TCI2011A03508

PATIENT
  Age: 51 Year
  Sex: Male

DRUGS (6)
  1. NOVOLOG [Concomitant]
  2. MICARDIS [Concomitant]
  3. ADALAT [Concomitant]
  4. LEVEMIR [Concomitant]
  5. ACTOS [Suspect]
     Indication: TYPE 2 DIABETES MELLITUS
     Dosage: 15 MG (15 MG, 1 IN 1 D) PER ORAL
     Route: 048
     Dates: start: 20080707
  6. SIMVASTATIN [Concomitant]

REACTIONS (1)
  - BLADDER NEOPLASM [None]
